FAERS Safety Report 7743494-6 (Version None)
Quarter: 2011Q3

REPORT INFORMATION
  Report Type: 
  Country: None (occurrence: None)
  Receive Date: 20110912
  Receipt Date: 20110304
  Transmission Date: 20111222
  Serious: No
  Sender: FDA-Public Use
  Company Number: US-ABBOTT-11P-163-0705104-00

PATIENT
  Sex: Male
  Weight: 111.23 kg

DRUGS (7)
  1. DEPAKOTE [Suspect]
     Indication: CONVULSION
     Dates: start: 20100201
  2. DILANTIN [Concomitant]
     Indication: CONVULSION
  3. CLARINEX [Concomitant]
     Indication: PRODUCT USED FOR UNKNOWN INDICATION
  4. TOPAMAX [Concomitant]
     Indication: CONVULSION
  5. CLORAZEPATE DIPOTASSIUM [Concomitant]
     Indication: ANXIETY
  6. M.V.I. [Concomitant]
     Indication: PRODUCT USED FOR UNKNOWN INDICATION
  7. ACIDOPHILUS [Concomitant]
     Indication: PRODUCT USED FOR UNKNOWN INDICATION

REACTIONS (6)
  - HEADACHE [None]
  - CONSTIPATION [None]
  - BRONCHITIS [None]
  - ABDOMINAL DISTENSION [None]
  - RESPIRATORY TRACT INFECTION [None]
  - TONSILLITIS [None]
